FAERS Safety Report 4448948-6 (Version None)
Quarter: 2004Q3

REPORT INFORMATION
  Report Type: 
  Country: None (occurrence: None)
  Receive Date: 20040909
  Receipt Date: 20040825
  Transmission Date: 20050211
  Serious: Yes (Other)
  Sender: FDA-Public Use
  Company Number: 187095

PATIENT
  Age: 47 Year
  Sex: Female
  Weight: 58.9676 kg

DRUGS (6)
  1. AVONEX [Suspect]
     Indication: MULTIPLE SCLEROSIS
     Dosage: 30 MCG QW IM
     Route: 030
     Dates: start: 19990101, end: 20031012
  2. AVONEX [Suspect]
     Indication: MULTIPLE SCLEROSIS
     Dosage: 30 MCG QW IM
     Route: 030
     Dates: start: 20031019
  3. AVONEX [Suspect]
     Indication: MULTIPLE SCLEROSIS
  4. HERBAL PREPARATIONS (NOS) [Concomitant]
  5. AMITRIPTYLINE HCL [Concomitant]
  6. TEGRETOL [Concomitant]

REACTIONS (4)
  - BREAST CANCER IN SITU [None]
  - HEADACHE [None]
  - INSOMNIA [None]
  - RESTLESSNESS [None]
